FAERS Safety Report 9607753 (Version 1)
Quarter: 2013Q4

REPORT INFORMATION
  Report Type: Spontaneous
  Country: GB (occurrence: GB)
  Receive Date: 20131009
  Receipt Date: 20131009
  Transmission Date: 20140711
  Serious: Yes (Other)
  Sender: FDA-Public Use
  Company Number: GB-JNJFOC-20131001490

PATIENT
  Age: 73 Year
  Sex: Male

DRUGS (1)
  1. ACETAMINOPHEN/CODEINE [Suspect]
     Indication: PERIARTHRITIS
     Route: 048

REACTIONS (1)
  - Vision blurred [Not Recovered/Not Resolved]
